FAERS Safety Report 25211341 (Version 1)
Quarter: 2025Q2

REPORT INFORMATION
  Report Type: Spontaneous
  Country: CN (occurrence: CN)
  Receive Date: 20250417
  Receipt Date: 20250417
  Transmission Date: 20250717
  Serious: Yes (Hospitalization)
  Sender: BEIGENE
  Company Number: CN-G1 THERAPEUTICS-2024G1CN0000149

PATIENT

DRUGS (19)
  1. TISLELIZUMAB [Suspect]
     Active Substance: TISLELIZUMAB
     Indication: Lung squamous cell carcinoma stage IV
  2. TISLELIZUMAB [Suspect]
     Active Substance: TISLELIZUMAB
     Indication: Analgesic therapy
  3. TISLELIZUMAB [Suspect]
     Active Substance: TISLELIZUMAB
     Indication: Cough
  4. TISLELIZUMAB [Suspect]
     Active Substance: TISLELIZUMAB
     Indication: Hypertension
  5. CARBOPLATIN [Suspect]
     Active Substance: CARBOPLATIN
     Indication: Lung squamous cell carcinoma stage IV
  6. CARBOPLATIN [Suspect]
     Active Substance: CARBOPLATIN
     Indication: Analgesic therapy
  7. CARBOPLATIN [Suspect]
     Active Substance: CARBOPLATIN
     Indication: Cough
  8. CARBOPLATIN [Suspect]
     Active Substance: CARBOPLATIN
     Indication: Hypertension
  9. PACLITAXEL [Suspect]
     Active Substance: PACLITAXEL
     Indication: Lung squamous cell carcinoma stage IV
  10. PACLITAXEL [Suspect]
     Active Substance: PACLITAXEL
     Indication: Analgesic therapy
  11. PACLITAXEL [Suspect]
     Active Substance: PACLITAXEL
     Indication: Cough
  12. PACLITAXEL [Suspect]
     Active Substance: PACLITAXEL
     Indication: Hypertension
  13. TRILACICLIB [Suspect]
     Active Substance: TRILACICLIB
     Indication: Lung squamous cell carcinoma stage IV
  14. TRILACICLIB [Suspect]
     Active Substance: TRILACICLIB
     Indication: Analgesic therapy
  15. TRILACICLIB [Suspect]
     Active Substance: TRILACICLIB
     Indication: Cough
  16. TRILACICLIB [Suspect]
     Active Substance: TRILACICLIB
     Indication: Hypertension
  17. CODEINE PHOSPHATE [Concomitant]
     Active Substance: CODEINE PHOSPHATE
     Indication: Product used for unknown indication
  18. AMLODIPINE BESYLATE [Concomitant]
     Active Substance: AMLODIPINE BESYLATE
     Indication: Product used for unknown indication
  19. Codeine phosphate;Ibuprofen [Concomitant]
     Indication: Product used for unknown indication

REACTIONS (1)
  - Hyponatraemia [Unknown]
